FAERS Safety Report 5692676-6 (Version None)
Quarter: 2008Q2

REPORT INFORMATION
  Report Type: 
  Country: None (occurrence: None)
  Receive Date: 20080402
  Receipt Date: 20080320
  Transmission Date: 20081010
  Serious: Yes (Hospitalization, Disabling)
  Sender: FDA-Public Use
  Company Number: CN-GENENTECH-258390

PATIENT
  Sex: Male
  Weight: 71 kg

DRUGS (4)
  1. BEVACIZUMAB [Suspect]
     Indication: COLON CANCER METASTATIC
     Dosage: 355 MG, Q2W
     Route: 042
     Dates: start: 20080225
  2. IRINOTECAN HCL [Suspect]
     Indication: COLON CANCER METASTATIC
     Dosage: 230 MG, 1/WEEK
     Route: 042
     Dates: start: 20080225
  3. FLUOROURACIL [Suspect]
     Indication: COLON CANCER METASTATIC
     Dosage: 915 MG, 1/WEEK
     Route: 042
     Dates: start: 20080225
  4. FOLINIC ACID [Suspect]
     Indication: COLON CANCER METASTATIC
     Dosage: 915 MG, 1/WEEK
     Route: 042
     Dates: start: 20080225

REACTIONS (1)
  - INTESTINAL OBSTRUCTION [None]
